FAERS Safety Report 16568934 (Version 4)
Quarter: 2019Q3

REPORT INFORMATION
  Report Type: Spontaneous
  Country: US (occurrence: US)
  Receive Date: 20190713
  Receipt Date: 20190819
  Transmission Date: 20191004
  Serious: No
  Sender: FDA-Public Use
  Company Number: US-GLAXOSMITHKLINE-US2019124590

PATIENT
  Sex: Female

DRUGS (4)
  1. ABREVA [Suspect]
     Active Substance: DOCOSANOL
     Indication: PRODUCT USED FOR UNKNOWN INDICATION
     Dosage: UNK
  2. ABREVA [Suspect]
     Active Substance: DOCOSANOL
     Dosage: UNK
  3. ABREVA [Suspect]
     Active Substance: DOCOSANOL
     Dosage: UNK
  4. ABREVA [Suspect]
     Active Substance: DOCOSANOL
     Dosage: UNK

REACTIONS (2)
  - Product complaint [Unknown]
  - Therapeutic product effect incomplete [Unknown]
